FAERS Safety Report 6581379-1 (Version None)
Quarter: 2010Q1

REPORT INFORMATION
  Report Type: 
  Country: None (occurrence: None)
  Receive Date: 20100215
  Receipt Date: 20100210
  Transmission Date: 20100710
  Serious: Yes (Death, Hospitalization)
  Sender: FDA-Public Use
  Company Number: CH-BAYER-201015264GPV

PATIENT
  Age: 63 Year
  Sex: Female
  Weight: 70 kg

DRUGS (10)
  1. AUGMENTIN [Suspect]
     Indication: SKIN INFECTION
     Dosage: TOTAL DAILY DOSE: 2 G
     Route: 048
     Dates: start: 20091119, end: 20091129
  2. CIPROXIN [Suspect]
     Indication: SKIN INFECTION
     Dosage: TOTAL DAILY DOSE: 1 G
     Route: 048
     Dates: start: 20091205, end: 20091222
  3. CO-AMOXI MEPHA [Suspect]
     Indication: SKIN INFECTION
     Dosage: TOTAL DAILY DOSE: 2 G
     Route: 048
     Dates: start: 20091222, end: 20091229
  4. XENALON [Concomitant]
     Dosage: TOTAL DAILY DOSE: 150 MG
  5. FERRUM HAUSMANN [Concomitant]
     Dosage: TOTAL DAILY DOSE: 100 MG
  6. ELTROXIN [Concomitant]
     Dosage: TOTAL DAILY DOSE: 0.05 MG
     Route: 048
  7. CONCOR PLUS [Concomitant]
     Dosage: AS USED: 5/12.5 MG
  8. MAGNESIUM DIASPORAL [Concomitant]
     Dosage: TOTAL DAILY DOSE: 300 MG
  9. NOVALGIN [Concomitant]
  10. ZOLPIDEM [Concomitant]
     Dosage: TOTAL DAILY DOSE: 10 MG

REACTIONS (6)
  - DIARRHOEA [None]
  - MULTI-ORGAN FAILURE [None]
  - RASH [None]
  - SEPSIS [None]
  - TOXIC EPIDERMAL NECROLYSIS [None]
  - VOMITING [None]
